FAERS Safety Report 6124809-1 (Version None)
Quarter: 2009Q1

REPORT INFORMATION
  Report Type: 
  Country: None (occurrence: None)
  Receive Date: 20090319
  Receipt Date: 20090309
  Transmission Date: 20090719
  Serious: Yes (Hospitalization, Other)
  Sender: FDA-Public Use
  Company Number: PHHY2009FR09099

PATIENT
  Age: 32 Year
  Sex: Female

DRUGS (1)
  1. LAMISIL [Suspect]
     Dosage: UNK
     Dates: start: 20090201, end: 20090201

REACTIONS (11)
  - CHEILITIS [None]
  - DERMATOSIS [None]
  - EOSINOPHILIA [None]
  - NEUTROPHIL COUNT INCREASED [None]
  - ODYNOPHAGIA [None]
  - OEDEMA PERIPHERAL [None]
  - RASH [None]
  - RASH MACULO-PAPULAR [None]
  - RASH VESICULAR [None]
  - TONGUE DISORDER [None]
  - TOXIC SKIN ERUPTION [None]
